FAERS Safety Report 23337731 (Version 1)
Quarter: 2023Q4

REPORT INFORMATION
  Report Type: Spontaneous
  Country: CN (occurrence: None)
  Receive Date: 20231226
  Receipt Date: 20231226
  Transmission Date: 20240109
  Serious: Yes (Other)
  Sender: FDA-Public Use
  Company Number: CN-ROCHE-3476642

PATIENT

DRUGS (6)
  1. COLUMVI [Suspect]
     Active Substance: GLOFITAMAB-GXBM
     Indication: B-cell lymphoma
     Route: 065
  2. COLUMVI [Suspect]
     Active Substance: GLOFITAMAB-GXBM
     Indication: Diffuse large B-cell lymphoma
  3. COLUMVI [Suspect]
     Active Substance: GLOFITAMAB-GXBM
     Indication: Mantle cell lymphoma
  4. COLUMVI [Suspect]
     Active Substance: GLOFITAMAB-GXBM
     Indication: Lymphoma transformation
  5. COLUMVI [Suspect]
     Active Substance: GLOFITAMAB-GXBM
     Indication: Lymphoma transformation
  6. COLUMVI [Suspect]
     Active Substance: GLOFITAMAB-GXBM
     Indication: Lymphoma transformation

REACTIONS (7)
  - Cytokine release syndrome [Unknown]
  - Nervous system disorder [Unknown]
  - Neutrophil count decreased [Unknown]
  - Platelet count decreased [Unknown]
  - Anaemia [Unknown]
  - Infection [Unknown]
  - Off label use [Unknown]
